FAERS Safety Report 4840472-1 (Version None)
Quarter: 2005Q4

REPORT INFORMATION
  Report Type: 
  Country: None (occurrence: None)
  Receive Date: 20051130
  Receipt Date: 20050705
  Transmission Date: 20060501
  Serious: Yes (Life-Threatening)
  Sender: FDA-Public Use
  Company Number: US-BRISTOL-MYERS SQUIBB COMPANY-13027149

PATIENT
  Age: 74 Year
  Sex: Female

DRUGS (7)
  1. ERBITUX [Suspect]
     Indication: COLORECTAL CANCER
     Dosage: 652 MG
     Route: 042
     Dates: start: 20050627, end: 20050627
  2. BENADRYL [Concomitant]
     Indication: PREMEDICATION
     Dates: start: 20050627, end: 20050627
  3. ANZEMET [Concomitant]
     Indication: PREMEDICATION
     Dates: start: 20050627, end: 20050627
  4. DECADRON [Concomitant]
     Indication: PREMEDICATION
     Dates: start: 20050627, end: 20050627
  5. TAGAMET [Concomitant]
     Indication: PREMEDICATION
     Dates: start: 20050627, end: 20050627
  6. ELOXATIN [Concomitant]
     Dates: start: 20050627
  7. AVASTIN [Concomitant]

REACTIONS (1)
  - HYPERSENSITIVITY [None]
